FAERS Safety Report 7548228-6 (Version None)
Quarter: 2011Q2

REPORT INFORMATION
  Report Type: 
  Country: None (occurrence: None)
  Receive Date: 20110608
  Receipt Date: 20110525
  Transmission Date: 20111010
  Serious: Yes (Other)
  Sender: FDA-Public Use
  Company Number: 2011MA006538

PATIENT
  Age: 64 Year
  Sex: Male
  Weight: 101 kg

DRUGS (26)
  1. IBUPROPEN [Concomitant]
  2. PENICILLIN [Concomitant]
  3. VENLAFAXINE [Concomitant]
  4. ROSUVASTATIN [Concomitant]
  5. MEPERIDINE HCL [Concomitant]
  6. PEPPERMINT OIL [Concomitant]
  7. CLOBETASOL PROPIONATE [Concomitant]
  8. NEBIVOLOL HCL [Concomitant]
  9. LANSOPRAZOLE [Concomitant]
  10. ASPIRIN [Concomitant]
  11. DULCOLAX [Concomitant]
  12. PROZAC [Concomitant]
  13. CLOPIDOGREL [Concomitant]
  14. GAVISCON [Concomitant]
  15. PROPRANOLOL [Concomitant]
  16. CITALOPRAM HYDROBROMIDE [Concomitant]
  17. BISOPROLOL FUMARATE [Suspect]
     Indication: MYOCARDIAL ISCHAEMIA
     Dosage: 2.5 MG;QD;PO
     Route: 048
     Dates: start: 20081101, end: 20100801
  18. TRAMADOL HCL [Concomitant]
  19. DIAZEPAM [Concomitant]
  20. PERINDOPRIL ERBUMINE [Concomitant]
  21. ACETAMINOPHEN [Concomitant]
  22. SIMVADOR [Concomitant]
  23. RAMIPRIL [Suspect]
     Indication: CARDIAC DISORDER
     Dosage: 2.5 MG;
  24. BISOPROLOL FUMARATE [Suspect]
     Indication: ACUTE MYOCARDIAL INFARCTION
     Dosage: 2.5 MG;QD;PO
     Route: 048
     Dates: start: 20081101, end: 20100801
  25. HYDROMOL [Concomitant]
  26. PICOLAX [Concomitant]

REACTIONS (7)
  - OSTEOARTHRITIS [None]
  - PSORIASIS [None]
  - CONDITION AGGRAVATED [None]
  - FALL [None]
  - JOINT EFFUSION [None]
  - GAIT DISTURBANCE [None]
  - LIGAMENT INJURY [None]
